FAERS Safety Report 4585967-3 (Version None)
Quarter: 2005Q1

REPORT INFORMATION
  Report Type: 
  Country: None (occurrence: None)
  Receive Date: 20050217
  Receipt Date: 20041126
  Transmission Date: 20050727
  Serious: Yes (Hospitalization)
  Sender: FDA-Public Use
  Company Number: DE-ABBOTT-04P-062-0281713-00

PATIENT
  Sex: Male
  Weight: 74 kg

DRUGS (8)
  1. HUMIRA [Suspect]
     Indication: RHEUMATOID ARTHRITIS
     Route: 058
     Dates: start: 20040201, end: 20040801
  2. HUMIRA [Suspect]
     Route: 058
     Dates: start: 20040201, end: 20040201
  3. METHOTREXATE SODIUM [Suspect]
     Indication: RHEUMATOID ARTHRITIS
     Route: 058
     Dates: start: 20010901, end: 20040801
  4. METHOTREXATE SODIUM [Suspect]
     Route: 058
     Dates: start: 20041001, end: 20041101
  5. LEFLUNOMIDE [Concomitant]
     Indication: RHEUMATOID ARTHRITIS
     Route: 048
     Dates: start: 20030701, end: 20040201
  6. CORTICOSTEROIDS [Concomitant]
     Indication: RHEUMATOID ARTHRITIS
     Dosage: BETWEEN 5 MG TO 30 MG
     Route: 048
     Dates: start: 20000101
  7. SULFASALAZINE [Concomitant]
     Indication: RHEUMATOID ARTHRITIS
     Route: 048
     Dates: start: 20050125, end: 20050202
  8. PREDNISOLONE [Concomitant]
     Indication: DRUG USE FOR UNKNOWN INDICATION
     Route: 048
     Dates: start: 20050203

REACTIONS (7)
  - CONDITION AGGRAVATED [None]
  - GASTROINTESTINAL DISORDER [None]
  - HERPES ZOSTER [None]
  - LUPUS-LIKE SYNDROME [None]
  - PNEUMONIA [None]
  - PYREXIA [None]
  - RHEUMATOID ARTHRITIS [None]
